FAERS Safety Report 10857527 (Version 1)
Quarter: 2015Q1

REPORT INFORMATION
  Report Type: Spontaneous
  Country: US (occurrence: US)
  Receive Date: 20150223
  Receipt Date: 20150223
  Transmission Date: 20150721
  Serious: No
  Sender: FDA-Public Use
  Company Number: US-ENDO PHARMACEUTICALS INC.-HCDA20140163

PATIENT
  Sex: Female

DRUGS (1)
  1. HYDROCODONE BITARTRATE/APAP TABLETS 5MG/300MG [Suspect]
     Active Substance: ACETAMINOPHEN\HYDROCODONE BITARTRATE
     Indication: PRODUCT USED FOR UNKNOWN INDICATION
     Route: 065
     Dates: start: 20141028

REACTIONS (3)
  - Palpitations [Unknown]
  - Malaise [Unknown]
  - Epistaxis [Unknown]

NARRATIVE: CASE EVENT DATE: 20141028
